FAERS Safety Report 12975050 (Version 3)
Quarter: 2017Q1

REPORT INFORMATION
  Report Type: Spontaneous
  Country: DE (occurrence: DE)
  Receive Date: 20161125
  Receipt Date: 20170315
  Transmission Date: 20170428
  Serious: Yes (Hospitalization, Other)
  Sender: FDA-Public Use
  Company Number: DE-AMGEN-DEUSP2016165007

PATIENT
  Age: 51 Year
  Sex: Male
  Weight: 103 kg

DRUGS (4)
  1. 5-FU [Concomitant]
     Active Substance: FLUOROURACIL
     Indication: COLON CANCER
     Dosage: 800 MG, Q2WK
     Dates: start: 20160829, end: 20170116
  2. ONCOFOLIC [Concomitant]
     Active Substance: FOLATE SODIUM
     Indication: COLON CANCER
     Dosage: 4000, UNK, Q2WK
     Dates: start: 20160829, end: 20170116
  3. VECTIBIX [Suspect]
     Active Substance: PANITUMUMAB
     Indication: COLON CANCER
     Dosage: 618 MG, Q2WK
     Route: 065
     Dates: start: 20160829, end: 20161107
  4. AXINOTECAN [Concomitant]
     Indication: COLON CANCER
     Dosage: 160 MG, Q2WK
     Dates: start: 20160829, end: 20170116

REACTIONS (1)
  - Venous thrombosis limb [Recovering/Resolving]

NARRATIVE: CASE EVENT DATE: 20161110
